FAERS Safety Report 6977975-X (Version None)
Quarter: 2010Q3

REPORT INFORMATION
  Report Type: 
  Country: None (occurrence: None)
  Receive Date: 20100913
  Receipt Date: 20100901
  Transmission Date: 20110219
  Serious: Yes (Death)
  Sender: FDA-Public Use
  Company Number: CN-PFIZER INC-2010109906

PATIENT
  Age: 2 Month
  Sex: Female

DRUGS (2)
  1. ZITHROMAX [Suspect]
     Indication: CHLAMYDIAL INFECTION
     Dosage: 10 MG, UNK
  2. IMIPENEM AND CILASTATIN [Concomitant]

REACTIONS (1)
  - CARDIAC ARREST [None]
